FAERS Safety Report 11610732 (Version 3)
Quarter: 2015Q4

REPORT INFORMATION
  Report Type: Report from Study
  Country: HU (occurrence: HU)
  Receive Date: 20151008
  Receipt Date: 20151021
  Transmission Date: 20160304
  Serious: Yes (Death)
  Sender: FDA-Public Use
  Company Number: HU-ROCHE-1640582

PATIENT
  Age: 7 Year
  Sex: Female

DRUGS (20)
  1. MAGNESIUM ASPARTATE/POTASSIUM ASPARTATE [Concomitant]
     Route: 065
     Dates: start: 20120209, end: 20120212
  2. PHYTOMENADIONE [Concomitant]
     Active Substance: PHYTONADIONE
     Route: 065
     Dates: start: 20120212, end: 20120214
  3. DEXAMETHASONE. [Concomitant]
     Active Substance: DEXAMETHASONE
     Route: 048
     Dates: start: 20120214, end: 20120214
  4. METAMIZOLE SODIUM [Concomitant]
     Active Substance: METAMIZOLE SODIUM
     Route: 065
     Dates: start: 20120213, end: 20120213
  5. MIDAZOLAM [Concomitant]
     Active Substance: MIDAZOLAM\MIDAZOLAM HYDROCHLORIDE
     Route: 065
     Dates: start: 20120821, end: 20120821
  6. PROPOFOL. [Concomitant]
     Active Substance: PROPOFOL
     Route: 065
     Dates: start: 20120529, end: 20120529
  7. TEMOZOLOMIDE. [Suspect]
     Active Substance: TEMOZOLOMIDE
     Dosage: THIS DOSE FOR CYCLE 12
     Route: 048
     Dates: start: 20130404, end: 20130408
  8. MANNITOL. [Concomitant]
     Active Substance: MANNITOL
     Route: 065
     Dates: start: 20120208, end: 20120213
  9. DOTAREM [Concomitant]
     Active Substance: GADOTERATE MEGLUMINE
     Route: 065
     Dates: start: 20120821, end: 20120821
  10. DEXAMETHASONE. [Concomitant]
     Active Substance: DEXAMETHASONE
     Route: 048
     Dates: start: 20120208, end: 20120213
  11. ETAMSYLATE [Concomitant]
     Active Substance: ETHAMSYLATE
     Route: 065
     Dates: start: 20120214, end: 20120217
  12. CARBAMAZEPIN [Concomitant]
     Active Substance: CARBAMAZEPINE
     Route: 065
     Dates: start: 20120210, end: 20120223
  13. ATROPIN [Concomitant]
     Active Substance: ATROPINE
     Route: 065
     Dates: start: 20120529, end: 20120529
  14. ATROPIN [Concomitant]
     Active Substance: ATROPINE
     Route: 065
     Dates: start: 20120821, end: 20120821
  15. CEFAZOLIN [Concomitant]
     Active Substance: CEFAZOLIN
     Route: 065
     Dates: start: 20120213, end: 20120214
  16. FUROSEMIDE. [Concomitant]
     Active Substance: FUROSEMIDE
     Route: 065
     Dates: start: 20120208, end: 20120214
  17. RANITIDINE [Concomitant]
     Active Substance: RANITIDINE\RANITIDINE HYDROCHLORIDE
     Route: 065
     Dates: start: 20120208, end: 20120214
  18. MIDAZOLAM [Concomitant]
     Active Substance: MIDAZOLAM\MIDAZOLAM HYDROCHLORIDE
     Route: 065
     Dates: start: 20120529, end: 20120529
  19. BEVACIZUMAB [Suspect]
     Active Substance: BEVACIZUMAB
     Indication: BRAIN NEOPLASM MALIGNANT
     Route: 042
     Dates: start: 20120322
  20. TEMOZOLOMIDE. [Suspect]
     Active Substance: TEMOZOLOMIDE
     Indication: BRAIN NEOPLASM MALIGNANT
     Dosage: 100 MG FOR CYCLE 1. DOSE: 75 MG/M2 PER DAY
     Route: 048
     Dates: start: 20120531, end: 20120604

REACTIONS (1)
  - Atypical teratoid/rhabdoid tumour of CNS [Fatal]

NARRATIVE: CASE EVENT DATE: 20150516
